FAERS Safety Report 10313767 (Version 3)
Quarter: 2014Q4

REPORT INFORMATION
  Report Type: Spontaneous
  Country: JP (occurrence: None)
  Receive Date: 20140716
  Receipt Date: 20141110
  Transmission Date: 20150528
  Serious: Yes (Hospitalization)
  Sender: FDA-Public Use
  Company Number: AXC-2014-000438

PATIENT
  Age: 16 Year
  Sex: Male
  Weight: 46 kg

DRUGS (4)
  1. URSODEOXYCHOLIC ACID (URSODEOXYCHOLIC ACID) UNKNOWN) [Suspect]
     Active Substance: URSODIOL
     Indication: CHOLANGITIS SCLEROSING
     Route: 048
     Dates: start: 20130920
  2. AZANIN [Suspect]
     Active Substance: AZATHIOPRINE
     Indication: PRODUCT USED FOR UNKNOWN INDICATION
     Route: 048
     Dates: start: 20140611, end: 20140701
  3. PENTASA [Concomitant]
     Active Substance: MESALAMINE
     Indication: COLITIS ULCERATIVE
     Route: 048
     Dates: start: 20140604
  4. BIO-THREE (BACILLUS MESENTERICUS, CLOSTIDIUM BUTYRICUM, STREPTOCOCCUS FAECALIS) UNKNOWN [Concomitant]

REACTIONS (7)
  - Pancreatitis acute [None]
  - Colitis ulcerative [None]
  - Pancreatic enlargement [None]
  - Gastrointestinal oedema [None]
  - Back pain [None]
  - Disease recurrence [None]
  - Ascites [None]

NARRATIVE: CASE EVENT DATE: 20140611
